FAERS Safety Report 17261917 (Version 1)
Quarter: 2020Q1

REPORT INFORMATION
  Report Type: Report from Study
  Country: IT (occurrence: IT)
  Receive Date: 20200113
  Receipt Date: 20200113
  Transmission Date: 20200409
  Serious: Yes (Other)
  Sender: FDA-Public Use
  Company Number: IT-TEVA-2020-IT-1166967

PATIENT
  Age: 26 Year
  Sex: Female

DRUGS (1)
  1. CLARITHROMYCIN. [Suspect]
     Active Substance: CLARITHROMYCIN
     Route: 065

REACTIONS (2)
  - Oedema peripheral [Unknown]
  - Pruritus [Unknown]

NARRATIVE: CASE EVENT DATE: 20191128
